FAERS Safety Report 7367978-8 (Version None)
Quarter: 2011Q1

REPORT INFORMATION
  Report Type: 
  Country: None (occurrence: None)
  Receive Date: 20110322
  Receipt Date: 20110309
  Transmission Date: 20110831
  Serious: Yes (Other)
  Sender: FDA-Public Use
  Company Number: PHHY2011GB19238

PATIENT
  Age: 72 Year
  Sex: Female

DRUGS (12)
  1. AMIODARONE HCL [Concomitant]
     Dosage: UNK
     Dates: end: 20110304
  2. BETAMETHASONE VALERATE [Concomitant]
  3. SIMVASTATIN [Concomitant]
     Dosage: UNK
     Dates: start: 20101116, end: 20110110
  4. SIMVASTATIN [Concomitant]
     Dosage: UNK
     Dates: end: 20110304
  5. IBUPROFEN [Concomitant]
     Dosage: UNK
     Dates: end: 20110303
  6. VALSARTAN [Concomitant]
     Dosage: UNK
     Dates: start: 20101116, end: 20110202
  7. RABEPRAZOLE SODIUM [Concomitant]
  8. TRAMADOL [Suspect]
  9. VALSARTAN [Concomitant]
     Dosage: UNK
     Dates: end: 20110304
  10. AMIODARONE HCL [Concomitant]
     Dosage: UNK
     Dates: start: 20101116, end: 20110202
  11. ASPIRIN [Concomitant]
     Dosage: UNK
     Dates: end: 20110304
  12. ASPIRIN [Concomitant]
     Dosage: UNK
     Dates: start: 20101116, end: 20110110

REACTIONS (1)
  - AGEUSIA [None]
